FAERS Safety Report 11230400 (Version 1)
Quarter: 2015Q2

REPORT INFORMATION
  Report Type: Spontaneous
  Country: US (occurrence: None)
  Receive Date: 20150629
  Receipt Date: 20150629
  Transmission Date: 20150821
  Serious: Yes (Hospitalization)
  Sender: FDA-Public Use
  Company Number: 2015-001315

PATIENT
  Sex: Female

DRUGS (1)
  1. ACTONEL [Suspect]
     Active Substance: RISEDRONATE SODIUM
     Indication: OSTEOPENIA
     Route: 048
     Dates: start: 20150601, end: 20150601

REACTIONS (7)
  - Tremor [None]
  - Hypokinesia [None]
  - Muscular weakness [None]
  - Body temperature increased [None]
  - Balance disorder [None]
  - Seizure [None]
  - Muscle spasms [None]

NARRATIVE: CASE EVENT DATE: 20150601
